FAERS Safety Report 8816413 (Version 1)
Quarter: 2012Q4

REPORT INFORMATION
  Report Type: Spontaneous
  Country: US (occurrence: None)
  Receive Date: 20120928
  Receipt Date: 20120928
  Transmission Date: 20130627
  Serious: No
  Sender: FDA-Public Use
  Company Number: None

PATIENT
  Sex: Male

DRUGS (2)
  1. PEG-ASPARAGINASE [Suspect]
     Indication: RIGORS
  2. PEG-ASPARAGINASE [Suspect]
     Indication: PREVENTION

REACTIONS (1)
  - Anaphylactic reaction [None]
